FAERS Safety Report 8966252 (Version 1)
Quarter: 2012Q4

REPORT INFORMATION
  Report Type: Report from Study
  Country: US (occurrence: US)
  Receive Date: 20121217
  Receipt Date: 20121217
  Transmission Date: 20130627
  Serious: Yes (Hospitalization)
  Sender: FDA-Public Use
  Company Number: US-JNJFOC-20121204114

PATIENT
  Age: 44 Year
  Sex: Female
  Weight: 81.65 kg

DRUGS (9)
  1. STELARA [Suspect]
     Indication: PSORIASIS
     Route: 058
     Dates: start: 201209
  2. STELARA [Suspect]
     Indication: PSORIASIS
     Route: 058
     Dates: start: 201004, end: 20120222
  3. STELARA [Suspect]
     Indication: ARTHRITIS
     Route: 058
     Dates: start: 201209
  4. STELARA [Suspect]
     Indication: ARTHRITIS
     Route: 058
     Dates: start: 201004, end: 20120222
  5. FENTANYL [Concomitant]
     Indication: PAIN
     Route: 061
  6. OXY IR [Concomitant]
     Indication: BREAKTHROUGH PAIN
     Route: 048
  7. CELEXA [Concomitant]
     Route: 048
  8. LASIX [Concomitant]
     Indication: OEDEMA
     Route: 048
  9. ZANAFLEX [Concomitant]
     Indication: MUSCLE SPASMS
     Route: 048

REACTIONS (7)
  - Medical device complication [Recovered/Resolved]
  - Arthropathy [Recovered/Resolved]
  - Medical device complication [Recovered/Resolved]
  - Post procedural complication [Recovered/Resolved]
  - Blood bilirubin increased [Unknown]
  - Drug dose omission [Unknown]
  - Drug effect decreased [Unknown]
